FAERS Safety Report 5856499-7 (Version None)
Quarter: 2008Q3

REPORT INFORMATION
  Report Type: 
  Country: None (occurrence: None)
  Receive Date: 20080825
  Receipt Date: 20080619
  Transmission Date: 20090109
  Serious: No
  Sender: FDA-Public Use
  Company Number: A0733912A

PATIENT
  Age: 55 Year
  Sex: Female

DRUGS (6)
  1. VERAMYST [Suspect]
     Indication: MULTIPLE ALLERGIES
     Dosage: 2SPR PER DAY
     Route: 045
     Dates: start: 20080301, end: 20080617
  2. ASMANEX TWISTHALER [Suspect]
     Dosage: 2PUFF PER DAY
     Dates: start: 20080401, end: 20080617
  3. TOPROL-XL [Concomitant]
  4. SINGULAIR [Concomitant]
  5. ZYRTEC [Concomitant]
  6. DIOVAN [Concomitant]

REACTIONS (5)
  - GAIT DISTURBANCE [None]
  - OEDEMA PERIPHERAL [None]
  - PAIN IN EXTREMITY [None]
  - SKIN TIGHTNESS [None]
  - SWELLING [None]
